FAERS Safety Report 6432141-1 (Version None)
Quarter: 2009Q4

REPORT INFORMATION
  Report Type: 
  Country: None (occurrence: None)
  Receive Date: 20091109
  Receipt Date: 20091029
  Transmission Date: 20100525
  Serious: Yes (Hospitalization, Other)
  Sender: FDA-Public Use
  Company Number: DK-JNJFOC-20091100389

PATIENT
  Sex: Female

DRUGS (6)
  1. REMICADE [Suspect]
     Route: 042
     Dates: start: 20090305, end: 20090805
  2. REMICADE [Suspect]
     Indication: RHEUMATOID ARTHRITIS
     Dosage: INFUSIONS AT WEEK 0, 2, 6, AND 8
     Route: 042
     Dates: start: 20090305, end: 20090805
  3. ENBREL [Suspect]
     Route: 058
  4. ENBREL [Suspect]
     Indication: RHEUMATOID ARTHRITIS
     Route: 058
  5. PREDNISOLONE [Concomitant]
  6. METHOTREXATE [Concomitant]
     Route: 048

REACTIONS (1)
  - BLADDER CANCER [None]
